FAERS Safety Report 8789811 (Version 2)
Quarter: 2012Q4

REPORT INFORMATION
  Report Type: 
  Country: US (occurrence: US)
  Receive Date: 20120917
  Receipt Date: 20121025
  Transmission Date: 20130627
  Serious: Yes (Hospitalization, Other)
  Sender: FDA-Public Use
  Company Number: US-ACTELION-A-US2012-71042

PATIENT
  Age: 69 Year
  Sex: Male
  Weight: 190.48 kg

DRUGS (5)
  1. TRACLEER [Suspect]
     Indication: PULMONARY ARTERIAL HYPERTENSION
     Dosage: UNK
     Route: 048
     Dates: start: 20070212
  2. ADCIRCA [Concomitant]
  3. COUMADIN [Concomitant]
  4. LASIX [Concomitant]
  5. SPIRONOLACTONE [Concomitant]

REACTIONS (4)
  - Cellulitis of male external genital organ [Recovering/Resolving]
  - Generalised oedema [Recovering/Resolving]
  - Weight increased [Recovering/Resolving]
  - Fluid overload [Recovering/Resolving]
